FAERS Safety Report 10008815 (Version 1)
Quarter: 2014Q1

REPORT INFORMATION
  Report Type: Spontaneous
  Country: US (occurrence: US)
  Receive Date: 20140313
  Receipt Date: 20140313
  Transmission Date: 20141002
  Serious: No
  Sender: FDA-Public Use
  Company Number: US-INCYTE CORPORATION-2012IN000818

PATIENT
  Age: 73 Year
  Sex: Male

DRUGS (5)
  1. JAKAFI [Suspect]
     Indication: MYELOFIBROSIS
     Dosage: 20 MG, BID
     Route: 048
     Dates: start: 201112, end: 20120511
  2. NORVASC [Concomitant]
  3. LISINOPRIL [Concomitant]
  4. OMEPRAZOLE [Concomitant]
  5. TYLENOL [Concomitant]

REACTIONS (8)
  - Chills [Unknown]
  - Hyperhidrosis [Unknown]
  - Neck pain [Unknown]
  - Musculoskeletal pain [Unknown]
  - Influenza like illness [Unknown]
  - Headache [Unknown]
  - Blood count abnormal [Unknown]
  - Dizziness [Unknown]
